FAERS Safety Report 20166143 (Version 1)
Quarter: 2021Q4

REPORT INFORMATION
  Report Type: Spontaneous
  Country: MX (occurrence: None)
  Receive Date: 20211209
  Receipt Date: 20211209
  Transmission Date: 20220303
  Serious: Yes (Other)
  Sender: FDA-Public Use
  Company Number: MX-ROCHE-2976745

PATIENT
  Sex: Male

DRUGS (1)
  1. GAZYVA [Suspect]
     Active Substance: OBINUTUZUMAB
     Indication: Chronic lymphocytic leukaemia
     Dosage: DOSE AND FREQUENCY WERE NOT REPORTED
     Route: 042

REACTIONS (2)
  - Tumour lysis syndrome [Unknown]
  - Myelosuppression [Unknown]
